FAERS Safety Report 18973762 (Version 3)
Quarter: 2021Q1

REPORT INFORMATION
  Report Type: Report from Study
  Country: CN (occurrence: CN)
  Receive Date: 20210305
  Receipt Date: 20210326
  Transmission Date: 20210420
  Serious: Yes (Hospitalization)
  Sender: FDA-Public Use
  Company Number: CN-ASTRAZENECA-2021A003178

PATIENT
  Age: 17812 Day
  Sex: Male

DRUGS (14)
  1. OSIMERTINIB. [Suspect]
     Active Substance: OSIMERTINIB
     Indication: NON-SMALL CELL LUNG CANCER
     Route: 048
     Dates: start: 20201224, end: 20210106
  2. OSIMERTINIB. [Suspect]
     Active Substance: OSIMERTINIB
     Indication: NON-SMALL CELL LUNG CANCER
     Route: 048
     Dates: start: 20210204, end: 20210225
  3. OSIMERTINIB. [Suspect]
     Active Substance: OSIMERTINIB
     Indication: NON-SMALL CELL LUNG CANCER
     Route: 048
     Dates: start: 20210225
  4. CARBOPLATIN. [Suspect]
     Active Substance: CARBOPLATIN
     Indication: NON-SMALL CELL LUNG CANCER
     Dosage: 621.8MG ONCE/SINGLE ADMINISTRATION
     Route: 042
     Dates: start: 20201224, end: 20201224
  5. PEMETREXED. [Suspect]
     Active Substance: PEMETREXED
     Indication: NON-SMALL CELL LUNG CANCER
     Dosage: 891.7MG ONCE/SINGLE ADMINISTRATION
     Route: 042
     Dates: start: 20210119, end: 20210119
  6. CARBOPLATIN. [Suspect]
     Active Substance: CARBOPLATIN
     Indication: NON-SMALL CELL LUNG CANCER
     Dosage: 621.8MG ONCE/SINGLE ADMINISTRATION
     Route: 042
     Dates: start: 20210119, end: 20210119
  7. CARBOPLATIN. [Suspect]
     Active Substance: CARBOPLATIN
     Indication: NON-SMALL CELL LUNG CANCER
     Dosage: 621.8MG ONCE/SINGLE ADMINISTRATION
     Route: 042
     Dates: start: 20210209, end: 20210209
  8. PEMETREXED. [Suspect]
     Active Substance: PEMETREXED
     Indication: NON-SMALL CELL LUNG CANCER
     Dosage: 891.7MG ONCE/SINGLE ADMINISTRATION
     Route: 042
     Dates: start: 20210209, end: 20210209
  9. METABOLIC SUBSTANCE OF ENTERAL NUTRITION LACTIC ACID BACTERIA JK?21 [Concomitant]
     Indication: NUTRITIONAL SUPPLEMENTATION
     Dosage: 1 PAG QD
     Route: 048
     Dates: start: 20201228, end: 20210107
  10. CAFFEIC ACID PIECE [Concomitant]
     Indication: PLATELET DISORDER
     Route: 048
     Dates: start: 20201231, end: 20210112
  11. PEMETREXED. [Suspect]
     Active Substance: PEMETREXED
     Indication: NON-SMALL CELL LUNG CANCER
     Dosage: 891.7MG ONCE/SINGLE ADMINISTRATION
     Route: 042
     Dates: start: 20210304, end: 20210304
  12. CARBOPLATIN. [Suspect]
     Active Substance: CARBOPLATIN
     Indication: NON-SMALL CELL LUNG CANCER
     Dosage: 621.8MG ONCE/SINGLE ADMINISTRATION
     Route: 042
     Dates: start: 20210304, end: 20210304
  13. OXYCODONE [Concomitant]
     Active Substance: OXYCODONE
     Indication: ANALGESIC THERAPY
     Route: 048
     Dates: start: 20201228, end: 20210207
  14. PEMETREXED. [Suspect]
     Active Substance: PEMETREXED
     Indication: NON-SMALL CELL LUNG CANCER
     Dosage: 891.7MG ONCE/SINGLE ADMINISTRATION
     Route: 042
     Dates: start: 20201224, end: 20201224

REACTIONS (1)
  - Drug-induced liver injury [Recovered/Resolved]

NARRATIVE: CASE EVENT DATE: 20201231
